FAERS Safety Report 4871156-1 (Version None)
Quarter: 2005Q4

REPORT INFORMATION
  Report Type: 
  Country: None (occurrence: None)
  Receive Date: 20051229
  Receipt Date: 20051215
  Transmission Date: 20060501
  Serious: Yes (Hospitalization, Other)
  Sender: FDA-Public Use
  Company Number: US200512001078

PATIENT
  Age: 72 Year
  Sex: Female

DRUGS (5)
  1. CYMBALTA [Suspect]
     Indication: DEPRESSION
     Dates: start: 20051202, end: 20051203
  2. OXYCONTIN [Concomitant]
  3. PREVACID [Concomitant]
  4. VICODIN [Concomitant]
  5. FOSAMAX /ITA/ (ALENDRONATE SODIUM) [Concomitant]

REACTIONS (3)
  - ANAPHYLACTIC SHOCK [None]
  - ANGIONEUROTIC OEDEMA [None]
  - INFLUENZA [None]
